FAERS Safety Report 17766108 (Version 1)
Quarter: 2020Q2

REPORT INFORMATION
  Report Type: Spontaneous
  Country: US (occurrence: US)
  Receive Date: 20200511
  Receipt Date: 20200511
  Transmission Date: 20200714
  Serious: Yes (Other)
  Sender: FDA-Public Use
  Company Number: US-JNJFOC-20191013581

PATIENT
  Age: 65 Year
  Sex: Female
  Weight: 66 kg

DRUGS (18)
  1. PRILOSEC [Concomitant]
     Active Substance: OMEPRAZOLE MAGNESIUM
  2. THEOPHYLLINE [Concomitant]
     Active Substance: THEOPHYLLINE ANHYDROUS
  3. SYNTHROID [Concomitant]
     Active Substance: LEVOTHYROXINE SODIUM
  4. LOMOTIL                            /00384302/ [Concomitant]
     Active Substance: LOPERAMIDE HYDROCHLORIDE
  5. CALCITRIOL. [Concomitant]
     Active Substance: CALCITRIOL
  6. MAGNESIUM OXIDE. [Concomitant]
     Active Substance: MAGNESIUM OXIDE
  7. DIPHENHYDRAMINE HYDROCHLORIDE. [Concomitant]
     Active Substance: DIPHENHYDRAMINE HYDROCHLORIDE
  8. PARACETAMOL [Concomitant]
     Active Substance: ACETAMINOPHEN
  9. IMODIUM [Concomitant]
     Active Substance: LOPERAMIDE HYDROCHLORIDE
  10. LENVATINIB [Suspect]
     Active Substance: LENVATINIB
     Indication: THYROID CANCER
     Route: 048
     Dates: start: 20190724
  11. POTASSIUM [Concomitant]
     Active Substance: POTASSIUM
  12. IBUPROFEN. [Concomitant]
     Active Substance: IBUPROFEN
  13. TUMS [Concomitant]
     Active Substance: CALCIUM CARBONATE
  14. SERTRALINE [Concomitant]
     Active Substance: SERTRALINE HYDROCHLORIDE
  15. ALBUTEROL                          /00139501/ [Concomitant]
     Active Substance: ALBUTEROL
  16. ATENOLOL. [Concomitant]
     Active Substance: ATENOLOL
  17. HCTZ [Concomitant]
     Active Substance: HYDROCHLOROTHIAZIDE
  18. TRAMADOL HYDROCHLORIDE. [Suspect]
     Active Substance: TRAMADOL HYDROCHLORIDE
     Indication: PRODUCT USED FOR UNKNOWN INDICATION
     Route: 065

REACTIONS (7)
  - Pain [Unknown]
  - Metastases to bone [Unknown]
  - Myalgia [Unknown]
  - Arthralgia [Unknown]
  - Skin ulcer [Unknown]
  - Nausea [Unknown]
  - Hypertension [Unknown]

NARRATIVE: CASE EVENT DATE: 201908
